FAERS Safety Report 6287712-2 (Version None)
Quarter: 2009Q3

REPORT INFORMATION
  Report Type: 
  Country: None (occurrence: None)
  Receive Date: 20090727
  Receipt Date: 20090727
  Transmission Date: 20100115
  Serious: Yes (Other)
  Sender: FDA-Public Use
  Company Number: None

PATIENT
  Age: 51 Year
  Sex: Female
  Weight: 58.514 kg

DRUGS (1)
  1. AMPHETAMINE SULFATE-DEXTROAMPHETAMINE SULFATE TAB [Suspect]
     Indication: ATTENTION DEFICIT/HYPERACTIVITY DISORDER
     Dosage: 20 MG CAPSULES, 2 X DAY, PO
     Route: 048
     Dates: start: 20060610, end: 20090724

REACTIONS (10)
  - ARTHRALGIA [None]
  - CONTUSION [None]
  - FATIGUE [None]
  - GAIT DISTURBANCE [None]
  - IMPAIRED WORK ABILITY [None]
  - INFLUENZA LIKE ILLNESS [None]
  - MOVEMENT DISORDER [None]
  - MUSCLE STRAIN [None]
  - NAUSEA [None]
  - PRODUCT SUBSTITUTION ISSUE [None]
